FAERS Safety Report 16164520 (Version 5)
Quarter: 2019Q3

REPORT INFORMATION
  Report Type: Spontaneous
  Country: JP (occurrence: JP)
  Receive Date: 20190405
  Receipt Date: 20190708
  Transmission Date: 20191004
  Serious: Yes (Hospitalization, Other)
  Sender: FDA-Public Use
  Company Number: JP-ALLERGAN-1914914US

PATIENT
  Sex: Male

DRUGS (2)
  1. BOTOX [Suspect]
     Active Substance: ONABOTULINUMTOXINA
     Indication: MUSCLE SPASTICITY
     Dosage: 240 UNITS, SINGLE
     Route: 030
     Dates: start: 20190225, end: 20190225
  2. BOTOX [Suspect]
     Active Substance: ONABOTULINUMTOXINA
     Dosage: UNK UNK, SINGLE
     Route: 030
     Dates: start: 2017, end: 2017

REACTIONS (12)
  - Rash macular [Unknown]
  - Swelling [Unknown]
  - Purpura [Unknown]
  - Purpura senile [Recovering/Resolving]
  - Injection site bruising [Recovering/Resolving]
  - Dermatitis atopic [Unknown]
  - Peripheral swelling [Recovered/Resolved]
  - Eye disorder [Unknown]
  - Hospitalisation [Unknown]
  - Thrombocytopenic purpura [Recovered/Resolved]
  - Injection site pain [Recovering/Resolving]
  - Haemorrhage subcutaneous [Recovering/Resolving]

NARRATIVE: CASE EVENT DATE: 2019
